FAERS Safety Report 18348934 (Version 1)
Quarter: 2020Q4

REPORT INFORMATION
  Report Type: Spontaneous
  Country: US (occurrence: US)
  Receive Date: 20201005
  Receipt Date: 20201005
  Transmission Date: 20210114
  Serious: No
  Sender: FDA-Public Use
  Company Number: None

PATIENT
  Age: 55 Year
  Sex: Female
  Weight: 79.38 kg

DRUGS (1)
  1. COSENTYX [Suspect]
     Active Substance: SECUKINUMAB
     Indication: PSORIATIC ARTHROPATHY
     Dosage: ?          OTHER FREQUENCY:DAY 28,THENEVERY4W;?
     Route: 058
     Dates: start: 202009

REACTIONS (5)
  - Nasopharyngitis [None]
  - Hypertension [None]
  - Therapy interrupted [None]
  - Condition aggravated [None]
  - Oropharyngeal pain [None]
